FAERS Safety Report 5924887-6 (Version None)
Quarter: 2008Q4

REPORT INFORMATION
  Report Type: 
  Country: None (occurrence: None)
  Receive Date: 20081017
  Receipt Date: 20081017
  Transmission Date: 20090506
  Serious: Yes (Other)
  Sender: FDA-Public Use
  Company Number: None

PATIENT
  Sex: Female
  Weight: 74.8435 kg

DRUGS (2)
  1. AVELOX [Suspect]
     Indication: UPPER RESPIRATORY TRACT INFECTION
     Dosage: 1 TABLET 1 TIMES DAILY PO
     Route: 048
     Dates: start: 20081015, end: 20081015
  2. CHERATUSSIN AC SYRUP QUALITEST [Suspect]
     Indication: COUGH
     Dosage: 1-2 TSP 4 TIMES DAILY PRN PO
     Route: 048
     Dates: start: 20081015, end: 20081016

REACTIONS (5)
  - ERUCTATION [None]
  - FEELING ABNORMAL [None]
  - FLATULENCE [None]
  - MIDDLE INSOMNIA [None]
  - VOMITING [None]
